FAERS Safety Report 5263505-X (Version None)
Quarter: 2007Q1

REPORT INFORMATION
  Report Type: 
  Country: None (occurrence: None)
  Receive Date: 20070313
  Receipt Date: 20070228
  Transmission Date: 20070707
  Serious: Yes (Other)
  Sender: FDA-Public Use
  Company Number: PHFR2007GB00789

PATIENT
  Age: 30 Year
  Sex: Male

DRUGS (4)
  1. CLOZARIL [Suspect]
     Indication: SCHIZOPHRENIA
     Dosage: 375MG DAILY
     Route: 048
     Dates: start: 20060127
  2. FERROUS SULFATE TAB [Concomitant]
     Indication: IRON DEFICIENCY
     Dosage: 200MG DAILY
     Route: 048
  3. HYOSCINE HBR HYT [Concomitant]
     Dosage: 300UG DAILY
     Route: 048
  4. CARBIMAZOLE [Concomitant]
     Indication: HYPERTHYROIDISM
     Dosage: 10MG DAILY
     Route: 048

REACTIONS (6)
  - DIZZINESS [None]
  - DYSKINESIA [None]
  - FALL [None]
  - HEART RATE INCREASED [None]
  - MUSCLE SPASMS [None]
  - MUSCLE TWITCHING [None]
